FAERS Safety Report 10728852 (Version 1)
Quarter: 2015Q1

REPORT INFORMATION
  Report Type: Spontaneous
  Country: US (occurrence: None)
  Receive Date: 20150120
  Receipt Date: 20150120
  Transmission Date: 20150721
  Serious: Yes (Life-Threatening, Hospitalization, Disabling)
  Sender: FDA-Public Use
  Company Number: None

PATIENT
  Age: 50 Year
  Sex: Female
  Weight: 68.04 kg

DRUGS (1)
  1. POVIDONE [Suspect]
     Active Substance: POVIDONE
     Indication: POST PROCEDURAL INFECTION
     Dosage: LEVOFLOXACIN TWICE DAILY TAKEN BY MOUTH
     Route: 048
     Dates: start: 20141215, end: 20150106

REACTIONS (8)
  - Drug hypersensitivity [None]
  - Palpitations [None]
  - Foot fracture [None]
  - Documented hypersensitivity to administered product [None]
  - Chest pain [None]
  - Dyspnoea [None]
  - Syncope [None]
  - Hypotension [None]
